FAERS Safety Report 6135394-2 (Version None)
Quarter: 2009Q1

REPORT INFORMATION
  Report Type: 
  Country: None (occurrence: None)
  Receive Date: 20090327
  Receipt Date: 20090320
  Transmission Date: 20090719
  Serious: Yes (Hospitalization)
  Sender: FDA-Public Use
  Company Number: US-ELI_LILLY_AND_COMPANY-US200902002420

PATIENT
  Sex: Female
  Weight: 117.91 kg

DRUGS (5)
  1. BYETTA [Suspect]
     Indication: TYPE 2 DIABETES MELLITUS
     Dosage: 5 UG, 2/D
     Route: 058
     Dates: start: 20070101, end: 20070101
  2. BYETTA [Suspect]
     Dosage: 10 UG, 2/D
     Route: 058
     Dates: start: 20070101
  3. LANTUS [Concomitant]
     Indication: TYPE 2 DIABETES MELLITUS
     Dosage: 40 U, DAILY (1/D)
     Route: 058
  4. CRESTOR [Concomitant]
     Indication: BLOOD CHOLESTEROL INCREASED
     Dosage: 20 MG, DAILY (1/D)
     Route: 048
  5. TRAMADOL HCL [Concomitant]
     Indication: ARTHRITIS
     Dosage: 50 MG, AS NEEDED
     Route: 048

REACTIONS (9)
  - BLOOD GLUCOSE INCREASED [None]
  - BLOOD PRESSURE INCREASED [None]
  - INCORRECT DOSE ADMINISTERED [None]
  - LUMBAR SPINAL STENOSIS [None]
  - MOBILITY DECREASED [None]
  - PROCEDURAL PAIN [None]
  - WEIGHT DECREASED [None]
  - WEIGHT INCREASED [None]
  - WOUND NECROSIS [None]
